FAERS Safety Report 25611134 (Version 1)
Quarter: 2025Q3

REPORT INFORMATION
  Report Type: Spontaneous
  Country: EU (occurrence: EU)
  Receive Date: 20250728
  Receipt Date: 20250728
  Transmission Date: 20251021
  Serious: Yes (Life-Threatening, Other)
  Sender: AUROBINDO
  Company Number: EU-FAMHP-DHH-N2025-124947

PATIENT
  Age: 35 Year
  Sex: Female
  Weight: 63 kg

DRUGS (3)
  1. ESCITALOPRAM [Interacting]
     Active Substance: ESCITALOPRAM OXALATE
     Indication: Product used for unknown indication
     Route: 065
  2. REMERGON [Interacting]
     Active Substance: MIRTAZAPINE
     Indication: Anxiety
     Route: 048
     Dates: start: 20250627, end: 20250628
  3. REMERGON [Interacting]
     Active Substance: MIRTAZAPINE
     Indication: Depression

REACTIONS (14)
  - Suicidal ideation [Recovering/Resolving]
  - Paralysis [Recovering/Resolving]
  - Seizure [Recovering/Resolving]
  - Aggression [Recovering/Resolving]
  - Violence-related symptom [Recovering/Resolving]
  - Dizziness [Recovering/Resolving]
  - Chills [Recovering/Resolving]
  - Ill-defined disorder [Recovering/Resolving]
  - Feeling abnormal [Recovering/Resolving]
  - Autoscopy [Recovering/Resolving]
  - Hypoaesthesia [Recovering/Resolving]
  - Sensory loss [Recovering/Resolving]
  - Patient elopement [Recovering/Resolving]
  - Drug interaction [Recovering/Resolving]

NARRATIVE: CASE EVENT DATE: 20250627
